FAERS Safety Report 5233704-1 (Version None)
Quarter: 2007Q1

REPORT INFORMATION
  Report Type: 
  Country: None (occurrence: None)
  Receive Date: 20070208
  Receipt Date: 20070129
  Transmission Date: 20070707
  Serious: Yes (Death, Life-Threatening)
  Sender: FDA-Public Use
  Company Number: FR-GLAXOSMITHKLINE-B0416957A

PATIENT
  Age: 51 Year
  Sex: Female

DRUGS (3)
  1. ALKERAN [Suspect]
     Indication: PRIMARY AMYLOIDOSIS
     Dosage: 10MG PER DAY
     Route: 048
     Dates: start: 20010705, end: 20020118
  2. DEXAMETHASONE TAB [Suspect]
     Indication: PRIMARY AMYLOIDOSIS
     Dosage: 40MG PER DAY
     Route: 048
     Dates: start: 20010705, end: 20020118
  3. THALIDOMIDE [Suspect]
     Dosage: 100MG PER DAY
     Route: 048
     Dates: start: 20010926, end: 20020128

REACTIONS (2)
  - SHOCK HAEMORRHAGIC [None]
  - TOXIC SHOCK SYNDROME [None]
